FAERS Safety Report 4431375-5 (Version None)
Quarter: 2004Q3

REPORT INFORMATION
  Report Type: 
  Country: None (occurrence: None)
  Receive Date: 20040820
  Receipt Date: 20040820
  Transmission Date: 20050211
  Serious: Yes (Hospitalization)
  Sender: FDA-Public Use
  Company Number: None

PATIENT
  Sex: Female
  Weight: 74.9 kg

DRUGS (3)
  1. SULFAMETHOXAZOLE + TRIMETHOPRIM [Suspect]
     Indication: CHRONIC OBSTRUCTIVE AIRWAYS DISEASE EXACERBATED
     Dosage: 1 TAB BID ORAL
     Route: 048
     Dates: start: 20040406, end: 20040415
  2. SULFAMETHOXAZOLE + TRIMETHOPRIM [Suspect]
     Indication: COUGH
     Dosage: 1 TAB BID ORAL
     Route: 048
     Dates: start: 20040406, end: 20040415
  3. SULFAMETHOXAZOLE + TRIMETHOPRIM [Suspect]
     Indication: DYSPNOEA
     Dosage: 1 TAB BID ORAL
     Route: 048
     Dates: start: 20040406, end: 20040415

REACTIONS (3)
  - BLOOD CREATININE INCREASED [None]
  - DYSPNOEA EXACERBATED [None]
  - RASH MACULO-PAPULAR [None]
